FAERS Safety Report 4475374-6 (Version None)
Quarter: 2004Q4

REPORT INFORMATION
  Report Type: 
  Country: None (occurrence: None)
  Receive Date: 20041015
  Receipt Date: 20041006
  Transmission Date: 20050328
  Serious: Yes (Hospitalization)
  Sender: FDA-Public Use
  Company Number: BE-JNJFOC-20040905820

PATIENT
  Age: 67 Year
  Sex: Female

DRUGS (10)
  1. PROPULSID [Suspect]
     Route: 049
     Dates: start: 20031101
  2. PROPULSID [Suspect]
     Route: 049
     Dates: start: 20031101
  3. ASAFLOW [Concomitant]
     Route: 049
  4. ALDACTAZINE [Concomitant]
     Route: 049
  5. ALDACTAZINE [Concomitant]
     Route: 049
  6. LANOXIN [Concomitant]
     Dosage: DOSE REPORTED AS 250
     Route: 049
  7. OMEPRAZOLE [Concomitant]
     Dosage: DOSE REPORTED AS 40
     Route: 049
  8. DOGMATIL [Concomitant]
     Dosage: 1/4 TABLET/DAY
     Route: 049
  9. DIOVANE [Concomitant]
     Dosage: DOSE REPORTED AS 150
     Route: 049
  10. CIPROXIN [Concomitant]
     Indication: URINARY TRACT INFECTION

REACTIONS (6)
  - DRUG TOXICITY [None]
  - NEPHRITIS INTERSTITIAL [None]
  - PYREXIA [None]
  - RENAL FAILURE [None]
  - URINARY TRACT INFECTION [None]
  - URTICARIA [None]
